FAERS Safety Report 16186355 (Version 1)
Quarter: 2019Q2

REPORT INFORMATION
  Report Type: Spontaneous
  Country: DE (occurrence: DE)
  Receive Date: 20190411
  Receipt Date: 20190411
  Transmission Date: 20190711
  Serious: Yes (Other)
  Sender: FDA-Public Use
  Company Number: DE-PFIZER INC-2019155491

PATIENT
  Sex: Male

DRUGS (1)
  1. DELIX (RAMIPRIL) [Suspect]
     Active Substance: RAMIPRIL
     Dosage: UNK
     Route: 065

REACTIONS (1)
  - Skin cancer [Unknown]
